FAERS Safety Report 11085092 (Version 4)
Quarter: 2015Q3

REPORT INFORMATION
  Report Type: Spontaneous
  Country: US (occurrence: US)
  Receive Date: 20150503
  Receipt Date: 20150714
  Transmission Date: 20151125
  Serious: Yes (Hospitalization)
  Sender: FDA-Public Use
  Company Number: US-JNJFOC-20150401276

PATIENT
  Age: 69 Year
  Sex: Male
  Weight: 113.4 kg

DRUGS (14)
  1. XARELTO [Suspect]
     Active Substance: RIVAROXABAN
     Indication: CEREBROVASCULAR ACCIDENT PROPHYLAXIS
     Dosage: IN THE A.M
     Route: 048
     Dates: start: 20130829, end: 20140405
  2. LASIX [Concomitant]
     Active Substance: FUROSEMIDE
     Route: 065
  3. POTASSIUM CHLORIDE. [Concomitant]
     Active Substance: POTASSIUM CHLORIDE
     Route: 065
  4. XARELTO [Suspect]
     Active Substance: RIVAROXABAN
     Indication: ATRIAL FIBRILLATION
     Dosage: IN THE A.M
     Route: 048
     Dates: start: 20130829, end: 20140405
  5. BYSTOLIC [Concomitant]
     Active Substance: NEBIVOLOL HYDROCHLORIDE
     Route: 065
  6. HYDRALAZINE [Concomitant]
     Active Substance: HYDRALAZINE HYDROCHLORIDE
     Route: 065
  7. BABY ASPIRIN [Suspect]
     Active Substance: ASPIRIN
     Indication: PRODUCT USED FOR UNKNOWN INDICATION
     Dosage: 325
     Route: 048
  8. METFORMIN [Concomitant]
     Active Substance: METFORMIN HYDROCHLORIDE
     Route: 065
  9. IRON [Concomitant]
     Active Substance: IRON
     Dosage: 325
     Route: 065
  10. GABAPENTIN. [Concomitant]
     Active Substance: GABAPENTIN
     Route: 065
  11. RESTORIL [Concomitant]
     Active Substance: TEMAZEPAM
     Route: 065
  12. XARELTO [Suspect]
     Active Substance: RIVAROXABAN
     Indication: EMBOLISM
     Dosage: IN THE A.M
     Route: 048
     Dates: start: 20130829, end: 20140405
  13. LOVASTATIN. [Concomitant]
     Active Substance: LOVASTATIN
     Route: 065
  14. PRILOSEC [Concomitant]
     Active Substance: OMEPRAZOLE MAGNESIUM
     Route: 065

REACTIONS (8)
  - Gastrointestinal haemorrhage [Unknown]
  - Neck pain [Unknown]
  - Iron deficiency anaemia [Unknown]
  - Fatigue [Unknown]
  - Abdominal distension [Unknown]
  - Chest discomfort [Unknown]
  - Oedema peripheral [Unknown]
  - Anaemia [Unknown]

NARRATIVE: CASE EVENT DATE: 20140305
